FAERS Safety Report 5123113-8 (Version None)
Quarter: 2006Q4

REPORT INFORMATION
  Report Type: 
  Country: None (occurrence: None)
  Receive Date: 20061004
  Receipt Date: 20061004
  Transmission Date: 20070319
  Serious: Yes (Hospitalization)
  Sender: FDA-Public Use
  Company Number: None

PATIENT
  Age: 67 Year
  Sex: Male
  Weight: 88.2 kg

DRUGS (2)
  1. BACTRIM DS [Suspect]
     Indication: EPIDIDYMITIS
     Dosage: 1 TABLET PO BID
     Route: 048
     Dates: start: 20060628, end: 20060704
  2. IBUPROFEN [Suspect]
     Indication: PAIN
     Dosage: 600 MG PO TID
     Route: 048
     Dates: start: 20060628, end: 20060704

REACTIONS (3)
  - RENAL FAILURE ACUTE [None]
  - SEPSIS [None]
  - SEPSIS SYNDROME [None]
